FAERS Safety Report 12612928 (Version 1)
Quarter: 2016Q3

REPORT INFORMATION
  Report Type: Spontaneous
  Country: US (occurrence: US)
  Receive Date: 20160802
  Receipt Date: 20160802
  Transmission Date: 20161109
  Serious: Yes (Other)
  Sender: FDA-Public Use
  Company Number: PHEH2016US018594

PATIENT
  Age: 102 Year
  Sex: Female
  Weight: 46.26 kg

DRUGS (1)
  1. AFINITOR [Suspect]
     Active Substance: EVEROLIMUS
     Indication: MALIGNANT NEOPLASM OF AMPULLA OF VATER
     Dosage: 10 MG, QD (2 DOSES TWO DAYS IN A ROW)
     Route: 065

REACTIONS (7)
  - Product use issue [Unknown]
  - Hyperphagia [Unknown]
  - Metastases to liver [Unknown]
  - Dyspepsia [Unknown]
  - Weight decreased [Unknown]
  - Malaise [Unknown]
  - Vomiting [Unknown]
